FAERS Safety Report 7553058-5 (Version None)
Quarter: 2011Q2

REPORT INFORMATION
  Report Type: 
  Country: None (occurrence: None)
  Receive Date: 20110616
  Receipt Date: 20110613
  Transmission Date: 20111010
  Serious: Yes (Disabling)
  Sender: FDA-Public Use
  Company Number: US-MERCK-1106USA01822

PATIENT

DRUGS (1)
  1. FOSAMAX [Suspect]
     Route: 048
     Dates: start: 20051101, end: 20100701

REACTIONS (1)
  - FEMUR FRACTURE [None]
